FAERS Safety Report 10031415 (Version 2)
Quarter: 2014Q2

REPORT INFORMATION
  Report Type: Spontaneous
  Country: JP (occurrence: JP)
  Receive Date: 20140324
  Receipt Date: 20140407
  Transmission Date: 20141212
  Serious: Yes (Other)
  Sender: FDA-Public Use
  Company Number: JP-TEVA-470131ISR

PATIENT
  Age: 70 Year
  Sex: Male

DRUGS (2)
  1. 5-FU (FLUOROURACIL) [Suspect]
     Indication: OESOPHAGEAL CARCINOMA
  2. CISPLATIN [Suspect]
     Indication: OESOPHAGEAL CARCINOMA

REACTIONS (1)
  - Stomatitis [Unknown]
